FAERS Safety Report 22102264 (Version 1)
Quarter: 2023Q1

REPORT INFORMATION
  Report Type: Spontaneous
  Country: BE (occurrence: BE)
  Receive Date: 20230316
  Receipt Date: 20230316
  Transmission Date: 20230417
  Serious: Yes (Life-Threatening, Hospitalization, Other)
  Sender: FDA-Public Use
  Company Number: BE-MLMSERVICE-20230301-4134315-1

PATIENT
  Age: 22 Year
  Sex: Female

DRUGS (5)
  1. TACROLIMUS [Suspect]
     Active Substance: TACROLIMUS
     Indication: Immunosuppressant drug therapy
     Dates: start: 2022, end: 2022
  2. PREDNISONE [Suspect]
     Active Substance: PREDNISONE
     Indication: Immunosuppressant drug therapy
     Dates: start: 2021
  3. AZATHIOPRINE [Suspect]
     Active Substance: AZATHIOPRINE
     Indication: Immunosuppressant drug therapy
     Dates: start: 2021
  4. TACROLIMUS [Suspect]
     Active Substance: TACROLIMUS
     Indication: Immunosuppressant drug therapy
     Dosage: TAPERED DOWN
     Dates: start: 2022
  5. TACROLIMUS [Suspect]
     Active Substance: TACROLIMUS
     Indication: Immunosuppressant drug therapy
     Dates: start: 2021

REACTIONS (3)
  - Cytotoxic oedema [Recovered/Resolved]
  - Immunosuppressant drug level increased [Unknown]
  - Toxic leukoencephalopathy [Recovered/Resolved]

NARRATIVE: CASE EVENT DATE: 20220101
